FAERS Safety Report 10421202 (Version 2)
Quarter: 2015Q3

REPORT INFORMATION
  Report Type: Spontaneous
  Country: US (occurrence: US)
  Receive Date: 20140830
  Receipt Date: 20150928
  Transmission Date: 20151125
  Serious: Yes (Other)
  Sender: FDA-Public Use
  Company Number: US-AMGEN-USASP2014065071

PATIENT
  Age: 76 Year
  Sex: Female

DRUGS (1)
  1. PROLIA [Suspect]
     Active Substance: DENOSUMAB
     Indication: OSTEOPOROSIS POSTMENOPAUSAL
     Dosage: UNK
     Route: 065
     Dates: start: 20140801

REACTIONS (9)
  - Herpes ophthalmic [Unknown]
  - Nasal congestion [Unknown]
  - Dyspnoea [Unknown]
  - Sensitivity of teeth [Unknown]
  - Myalgia [Not Recovered/Not Resolved]
  - Tooth disorder [Unknown]
  - Dry eye [Unknown]
  - Insomnia [Unknown]
  - Neuralgia [Unknown]

NARRATIVE: CASE EVENT DATE: 201408
